FAERS Safety Report 7490738-4 (Version None)
Quarter: 2011Q2

REPORT INFORMATION
  Report Type: 
  Country: None (occurrence: None)
  Receive Date: 20110519
  Receipt Date: 20090821
  Transmission Date: 20111010
  Serious: Yes (Other)
  Sender: FDA-Public Use
  Company Number: US-BAYER-2011-007458

PATIENT
  Age: 62 Year
  Sex: Male
  Weight: 102.95 kg

DRUGS (30)
  1. CARDIZEM [Concomitant]
  2. PLASMALYTE [GLUCOSE,POTASSIUM CHLORIDE] [Concomitant]
     Dosage: 700CC
     Route: 042
     Dates: start: 20051020, end: 20051020
  3. HEPARIN [Concomitant]
     Dosage: 10000UNITS
     Route: 042
     Dates: start: 20051020, end: 20051020
  4. NORVASC [Concomitant]
     Dosage: UNK
     Dates: start: 20010101
  5. ESMOLOL [Concomitant]
     Dosage: UNK
     Route: 042
     Dates: start: 20010225
  6. PLATELETS [Concomitant]
     Dosage: UNK
     Dates: start: 20051020
  7. TRASYLOL [Suspect]
     Indication: AORTIC SURGERY
     Dosage: 1 ML INITIAL (TEST) DOSE
     Route: 042
     Dates: start: 20010225, end: 20010225
  8. TRASYLOL [Suspect]
     Dosage: 200ML LOADING DOSE
     Route: 042
     Dates: start: 20051020, end: 20051020
  9. HESPAN IN EXCEL PLASTIC CONTAINER [Concomitant]
     Dosage: 500CC
     Dates: start: 20051020, end: 20051020
  10. SODIUM BICARBONATE [Concomitant]
     Dosage: 100MEQ
     Route: 042
     Dates: start: 20010225, end: 20010225
  11. SODIUM BICARBONATE [Concomitant]
     Dosage: 50MEQ
     Route: 042
     Dates: start: 20051020, end: 20051020
  12. MILRINONE [Concomitant]
     Dosage: 0.5MCG/KG/MIN
     Route: 042
     Dates: start: 20051020, end: 20051020
  13. EPINEPHRINE [Concomitant]
     Dosage: 2.0-4.0
     Route: 042
     Dates: start: 20010225
  14. PLASMA [Concomitant]
     Dosage: UNK
     Route: 042
     Dates: start: 20051020
  15. EPINEPHRINE [Concomitant]
     Dosage: 4MCG/MIN
     Route: 042
     Dates: start: 20051020, end: 20051020
  16. PLATELETS [Concomitant]
     Dosage: UNK
     Route: 042
     Dates: start: 20010225
  17. CRYOPRECIPITATES [Concomitant]
     Dosage: UNK
     Dates: start: 20051020
  18. HEPARIN [Concomitant]
     Dosage: 10,000UNITS
     Route: 042
     Dates: start: 20010225, end: 20010225
  19. LASIX [Concomitant]
     Dosage: 40 MG
     Route: 042
     Dates: start: 20051020, end: 20051020
  20. RED BLOOD CELLS [Concomitant]
     Dosage: UNK
     Route: 042
     Dates: start: 20051020
  21. TRASYLOL [Suspect]
     Indication: AORTIC VALVE REPLACEMENT
     Dosage: 100CC LOADING DOSE
     Route: 042
     Dates: start: 20010225, end: 20010225
  22. HESPAN IN EXCEL PLASTIC CONTAINER [Concomitant]
     Dosage: 30GM-500CC
     Route: 042
     Dates: start: 20010225, end: 20010225
  23. LASIX [Concomitant]
     Dosage: 40 MG
     Route: 042
     Dates: start: 20010225, end: 20010225
  24. TRASYLOL [Suspect]
     Dosage: INITIAL DOSE
     Route: 042
     Dates: start: 20051020, end: 20051020
  25. VANCOMYCIN [Concomitant]
     Dosage: UNK
     Route: 042
     Dates: start: 20010225
  26. PLASMALYTE [GLUCOSE,POTASSIUM CHLORIDE] [Concomitant]
     Dosage: 1000CC
     Route: 042
     Dates: start: 20010225, end: 20010225
  27. NITROGLYCERIN [Concomitant]
     Dosage: 0.15-0.36 MCG/KG/MIN
     Route: 042
     Dates: start: 20010225
  28. CEFEPIME [Concomitant]
     Dosage: 1 GM
     Route: 042
     Dates: start: 20010225, end: 20010225
  29. ACCUPRIL [Concomitant]
     Dosage: 2PILLS DAILY
  30. RED BLOOD CELLS [Concomitant]
     Dosage: 3 UNITS
     Route: 042
     Dates: start: 20010225

REACTIONS (24)
  - FEAR OF DEATH [None]
  - ASTHMA [None]
  - MULTI-ORGAN FAILURE [None]
  - PAIN [None]
  - ATRIAL FIBRILLATION [None]
  - ACUTE RESPIRATORY DISTRESS SYNDROME [None]
  - RENAL FAILURE ACUTE [None]
  - RENAL INJURY [None]
  - FEAR [None]
  - DEPRESSION [None]
  - HYPERTENSION [None]
  - RENAL FAILURE [None]
  - CEREBROVASCULAR ACCIDENT [None]
  - INJURY [None]
  - EMOTIONAL DISTRESS [None]
  - STAPHYLOCOCCAL INFECTION [None]
  - ANXIETY [None]
  - UNEVALUABLE EVENT [None]
  - NERVOUSNESS [None]
  - ATRIAL FLUTTER [None]
  - THROMBOCYTOPENIA [None]
  - ACUTE RESPIRATORY FAILURE [None]
  - ANAEMIA [None]
  - METABOLIC ENCEPHALOPATHY [None]
